FAERS Safety Report 9607407 (Version 1)
Quarter: 2013Q4

REPORT INFORMATION
  Report Type: Spontaneous
  Country: US (occurrence: None)
  Receive Date: 20131007
  Receipt Date: 20131007
  Transmission Date: 20140711
  Serious: Yes (Disabling)
  Sender: FDA-Public Use
  Company Number: None

PATIENT
  Age: 37 Year
  Sex: Male
  Weight: 117.94 kg

DRUGS (1)
  1. ANDRODERM [Suspect]
     Indication: BLOOD TESTOSTERONE DECREASED
     Dosage: 1 UNIT ONCE DAILY  APPLIED TO A SURFACE, USUALLY THE SKIN
     Dates: start: 20111019, end: 20131005

REACTIONS (1)
  - Circumstance or information capable of leading to device use error [None]
